FAERS Safety Report 16425431 (Version 1)
Quarter: 2019Q2

REPORT INFORMATION
  Report Type: Spontaneous
  Country: US (occurrence: US)
  Receive Date: 20190613
  Receipt Date: 20190613
  Transmission Date: 20190711
  Serious: Yes (Hospitalization)
  Sender: FDA-Public Use
  Company Number: US-TEVA-2019-US-1061410

PATIENT
  Sex: Female

DRUGS (1)
  1. LOPERAMIDE [Suspect]
     Active Substance: LOPERAMIDE
     Indication: BACK PAIN
     Dosage: 72 LOPERAMIDE 4MG TABLETS DAILY FOR THE PREVIOUS 4-6 MONTHS
     Route: 065

REACTIONS (4)
  - Drug withdrawal syndrome [Unknown]
  - Cardiac arrest [Unknown]
  - Toxicity to various agents [Unknown]
  - Ventricular arrhythmia [Unknown]
